FAERS Safety Report 6767410-9 (Version None)
Quarter: 2010Q2

REPORT INFORMATION
  Report Type: 
  Country: None (occurrence: None)
  Receive Date: 20100614
  Receipt Date: 20100603
  Transmission Date: 20101027
  Serious: Yes (Hospitalization)
  Sender: FDA-Public Use
  Company Number: TR-BAXTER-2010BH004229

PATIENT
  Age: 10 Year
  Sex: Male
  Weight: 38 kg

DRUGS (4)
  1. RECOMBINATE [Suspect]
     Indication: HAEMOPHILIA
     Route: 065
     Dates: start: 20100213, end: 20100214
  2. RECOMBINATE [Suspect]
     Indication: TRAUMATIC HAEMORRHAGE
     Route: 065
     Dates: start: 20100213, end: 20100214
  3. RECOMBINATE [Suspect]
     Route: 065
     Dates: start: 20100213, end: 20100214
  4. RECOMBINATE [Suspect]
     Route: 065
     Dates: start: 20100213, end: 20100214

REACTIONS (3)
  - CYANOSIS [None]
  - PYREXIA [None]
  - TREMOR [None]
